FAERS Safety Report 15097795 (Version 1)
Quarter: 2018Q3

REPORT INFORMATION
  Report Type: Spontaneous
  Country: US (occurrence: US)
  Receive Date: 20180702
  Receipt Date: 20180702
  Transmission Date: 20181010
  Serious: No
  Sender: FDA-Public Use
  Company Number: US-PFM-2017-10610

PATIENT

DRUGS (2)
  1. HEMANGEOL [Suspect]
     Active Substance: PROPRANOLOL HYDROCHLORIDE
     Indication: PRODUCT USED FOR UNKNOWN INDICATION
     Dosage: 2.2 ML GIVEN ONCE
     Route: 048
     Dates: start: 20171110, end: 20171110
  2. HEMANGEOL [Suspect]
     Active Substance: PROPRANOLOL HYDROCHLORIDE
     Indication: DRUG ADMINISTRATION ERROR

REACTIONS (1)
  - Wrong patient received medication [Unknown]

NARRATIVE: CASE EVENT DATE: 20171110
